FAERS Safety Report 6584635-6 (Version None)
Quarter: 2010Q1

REPORT INFORMATION
  Report Type: 
  Country: None (occurrence: None)
  Receive Date: 20100212
  Receipt Date: 20100212
  Transmission Date: 20100710
  Serious: Yes (Hospitalization)
  Sender: FDA-Public Use
  Company Number: None

PATIENT
  Age: 63 Year
  Sex: Male

DRUGS (1)
  1. CITALOPRAM HYDROBROMIDE [Suspect]
     Indication: POST-TRAUMATIC STRESS DISORDER
     Dosage: 20 MG EVERY DAY PO
     Route: 048
     Dates: start: 20090929, end: 20091028

REACTIONS (2)
  - HYPONATRAEMIA [None]
  - POLYDIPSIA PSYCHOGENIC [None]
